FAERS Safety Report 7308818-2 (Version None)
Quarter: 2011Q1

REPORT INFORMATION
  Report Type: 
  Country: None (occurrence: None)
  Receive Date: 20110223
  Receipt Date: 20110217
  Transmission Date: 20110831
  Serious: Yes (Other)
  Sender: FDA-Public Use
  Company Number: IT-PFIZER INC-2011036145

PATIENT
  Age: 13 Year
  Sex: Male

DRUGS (1)
  1. UNASYN [Suspect]
     Indication: ANTIBIOTIC PROPHYLAXIS
     Dosage: 4 UNIT DOSES DAILY
     Route: 042
     Dates: start: 20110213, end: 20110216

REACTIONS (1)
  - ANGIOEDEMA [None]
